FAERS Safety Report 7412857-0 (Version None)
Quarter: 2011Q2

REPORT INFORMATION
  Report Type: 
  Country: None (occurrence: None)
  Receive Date: 20110413
  Receipt Date: 20110331
  Transmission Date: 20111010
  Serious: Yes (Hospitalization)
  Sender: FDA-Public Use
  Company Number: B0712344A

PATIENT
  Age: 54 Year
  Sex: Male

DRUGS (3)
  1. ICAZ [Suspect]
     Route: 048
     Dates: start: 20080501, end: 20080626
  2. ALLOPURINOL [Suspect]
     Dosage: 200MG PER DAY
     Route: 048
     Dates: start: 20080501, end: 20080626
  3. ATORVASTATIN [Concomitant]

REACTIONS (6)
  - PYREXIA [None]
  - HYPERSENSITIVITY [None]
  - RENAL FAILURE ACUTE [None]
  - JAUNDICE [None]
  - RASH ERYTHEMATOUS [None]
  - CYTOLYTIC HEPATITIS [None]
